FAERS Safety Report 4714206-5 (Version None)
Quarter: 2005Q3

REPORT INFORMATION
  Report Type: 
  Country: None (occurrence: None)
  Receive Date: 20050712
  Receipt Date: 20050628
  Transmission Date: 20060218
  Serious: Yes (Other)
  Sender: FDA-Public Use
  Company Number: DE-2005-008047

PATIENT
  Age: 47 Year
  Sex: Female

DRUGS (2)
  1. YASMIN [Suspect]
     Dosage: ORAL
     Route: 048
     Dates: start: 20040401, end: 20050531
  2. KERLONE [Concomitant]

REACTIONS (7)
  - CREATININE RENAL CLEARANCE DECREASED [None]
  - FATIGUE [None]
  - GLOMERULAR FILTRATION RATE DECREASED [None]
  - INFECTION IN AN IMMUNOCOMPROMISED HOST [None]
  - MIGRAINE [None]
  - PROTEIN URINE PRESENT [None]
  - RENAL FUNCTION TEST ABNORMAL [None]
